FAERS Safety Report 8109067 (Version 4)
Quarter: 2013Q2

REPORT INFORMATION
  Report Type: Report from Study
  Country: RO (occurrence: RO)
  Receive Date: 20110826
  Receipt Date: 20130416
  Transmission Date: 20140414
  Serious: Yes (Hospitalization)
  Sender: FDA-Public Use
  Company Number: PHHO2011RO12952

PATIENT
  Age: 24 Year
  Sex: Female
  Weight: 62 kg

DRUGS (2)
  1. FTY [Suspect]
     Indication: MULTIPLE SCLEROSIS
     Dosage: 0.5 MG OR 1.25 MG
     Route: 048
     Dates: start: 20110329, end: 20110728
  2. SOLU-MEDROL [Concomitant]
     Indication: MULTIPLE SCLEROSIS
     Dosage: UNK
     Dates: start: 20090206, end: 20090208

REACTIONS (2)
  - Abortion spontaneous [Unknown]
  - Exposure during pregnancy [Unknown]
